FAERS Safety Report 6604183-4 (Version None)
Quarter: 2010Q1

REPORT INFORMATION
  Report Type: 
  Country: None (occurrence: None)
  Receive Date: 20100226
  Receipt Date: 20090623
  Transmission Date: 20100710
  Serious: No
  Sender: FDA-Public Use
  Company Number: A0793296A

PATIENT
  Age: 47 Year
  Sex: Female

DRUGS (3)
  1. LAMICTAL CD [Suspect]
     Indication: BIPOLAR DISORDER
     Dosage: 400MG PER DAY
     Route: 048
     Dates: start: 20080101
  2. SEROQUEL [Suspect]
     Dosage: 50MG PER DAY
     Dates: start: 20090401, end: 20090610
  3. METFORMIN HYDROCHLORIDE [Concomitant]

REACTIONS (3)
  - CONTUSION [None]
  - RASH [None]
  - URTICARIA [None]
